FAERS Safety Report 11474009 (Version 1)
Quarter: 2015Q3

REPORT INFORMATION
  Report Type: Spontaneous
  Country: US (occurrence: None)
  Receive Date: 20150902
  Receipt Date: 20150902
  Transmission Date: 20151125
  Serious: Yes (Hospitalization)
  Sender: FDA-Public Use
  Company Number: A-NJ2015-115334

PATIENT
  Age: 31 Year
  Sex: Female

DRUGS (9)
  1. TYVASO [Suspect]
     Active Substance: TREPROSTINIL
     Indication: PULMONARY ARTERIAL HYPERTENSION
     Dosage: 18-72MCG, QID, RESPIRATORY
     Route: 055
     Dates: start: 20111011, end: 20150326
  2. DIGOXIN. [Concomitant]
     Active Substance: DIGOXIN
  3. VELETRI [Suspect]
     Active Substance: EPOPROSTENOL
     Indication: PULMONARY ARTERIAL HYPERTENSION
     Dosage: 11 NG/KG, PER MIN, INTRAVENOUS
     Route: 042
     Dates: start: 20150324
  4. ADCIRCA [Concomitant]
     Active Substance: TADALAFIL
  5. JANTOVEN (WARFARIN SODIUM) [Concomitant]
  6. LETAIRIS [Concomitant]
     Active Substance: AMBRISENTAN
  7. COUMADIN [Concomitant]
     Active Substance: WARFARIN SODIUM
  8. FLONASE [Concomitant]
     Active Substance: FLUTICASONE PROPIONATE
  9. LEVOTHYROXINE. [Concomitant]
     Active Substance: LEVOTHYROXINE

REACTIONS (6)
  - Headache [None]
  - Pain in jaw [None]
  - Syncope [None]
  - Nausea [None]
  - Diarrhoea [None]
  - Nasopharyngitis [None]

NARRATIVE: CASE EVENT DATE: 201503
